FAERS Safety Report 6439890-X (Version None)
Quarter: 2009Q4

REPORT INFORMATION
  Report Type: 
  Country: None (occurrence: None)
  Receive Date: 20091113
  Receipt Date: 20091113
  Transmission Date: 20100525
  Serious: Yes (Other)
  Sender: FDA-Public Use
  Company Number: US-PFIZER INC-2009178156

PATIENT
  Sex: Female

DRUGS (1)
  1. ZITHROMAX [Suspect]

REACTIONS (5)
  - ANXIETY [None]
  - DEPRESSION [None]
  - IRRITABILITY [None]
  - NAUSEA [None]
  - VOMITING [None]
